FAERS Safety Report 8808553 (Version 1)
Quarter: 2012Q4

REPORT INFORMATION
  Report Type: 
  Country: US (occurrence: None)
  Receive Date: 20120920
  Receipt Date: 20120920
  Transmission Date: 20130627
  Serious: No
  Sender: FDA-Public Use
  Company Number: None

PATIENT

DRUGS (1)
  1. ALFA 2 INTERFERON 2B (INTRON-A) [Suspect]

REACTIONS (1)
  - Hypophosphataemia [None]
